FAERS Safety Report 14187400 (Version 1)
Quarter: 2017Q4

REPORT INFORMATION
  Report Type: Spontaneous
  Country: US (occurrence: US)
  Receive Date: 20171113
  Receipt Date: 20171113
  Transmission Date: 20180321
  Serious: Yes (Other)
  Sender: FDA-Public Use
  Company Number: None

PATIENT
  Age: 75 Year
  Sex: Male

DRUGS (1)
  1. LIDOCAINE. [Suspect]
     Active Substance: LIDOCAINE
     Route: 062
     Dates: start: 20170203, end: 20170703

REACTIONS (4)
  - Product substitution issue [None]
  - Product adhesion issue [None]
  - Hypersensitivity [None]
  - Drug effect decreased [None]

NARRATIVE: CASE EVENT DATE: 20170703
